FAERS Safety Report 4586403-3 (Version None)
Quarter: 2005Q1

REPORT INFORMATION
  Report Type: 
  Country: None (occurrence: None)
  Receive Date: 20050125
  Receipt Date: 20041028
  Transmission Date: 20050727
  Serious: No
  Sender: FDA-Public Use
  Company Number: USA040876953

PATIENT
  Age: 78 Year
  Sex: Female
  Weight: 56 kg

DRUGS (15)
  1. FORTEO [Suspect]
     Indication: OSTEOPOROSIS
     Dates: start: 20040825
  2. EVISTA [Suspect]
  3. MIACALCIN [Concomitant]
  4. VERAPAMIL [Concomitant]
  5. VALSARTAN [Concomitant]
  6. SUCRALFATE [Concomitant]
  7. ACETYLSALICYLIC ACID SRT [Concomitant]
  8. VITAMIN E [Concomitant]
  9. FOLIC ACID [Concomitant]
  10. MAGNESIUM [Concomitant]
  11. CENTRUM [Concomitant]
  12. RANITIDINE [Concomitant]
  13. NASONEX [Concomitant]
  14. LEVOTHYROXINE SODIUM [Concomitant]
  15. ACIPHEX [Concomitant]

REACTIONS (12)
  - CHEST PAIN [None]
  - CONSTIPATION [None]
  - COUGH DECREASED [None]
  - DYSPNOEA [None]
  - FEELING ABNORMAL [None]
  - GASTROOESOPHAGEAL REFLUX DISEASE [None]
  - INJECTION SITE ERYTHEMA [None]
  - INJECTION SITE PAIN [None]
  - MUSCLE SPASMS [None]
  - NAUSEA [None]
  - OESOPHAGEAL PAIN [None]
  - PLEURISY [None]
